FAERS Safety Report 18953370 (Version 1)
Quarter: 2021Q1

REPORT INFORMATION
  Report Type: Spontaneous
  Country: US (occurrence: US)
  Receive Date: 20210301
  Receipt Date: 20210301
  Transmission Date: 20210420
  Serious: Yes (Hospitalization, Other)
  Sender: FDA-Public Use
  Company Number: US-ACCORD-217976

PATIENT
  Age: 41 Year
  Sex: Female

DRUGS (2)
  1. TACROLIMUS. [Suspect]
     Active Substance: TACROLIMUS
     Indication: CHRONIC GRAFT VERSUS HOST DISEASE
     Route: 061
  2. BETAMETHASONE. [Concomitant]
     Active Substance: BETAMETHASONE
     Indication: CHRONIC GRAFT VERSUS HOST DISEASE
     Route: 061

REACTIONS (5)
  - Blood creatinine increased [Recovering/Resolving]
  - Nephropathy [Recovering/Resolving]
  - Condition aggravated [Recovering/Resolving]
  - Pancytopenia [Unknown]
  - Nephropathy toxic [Recovering/Resolving]
